FAERS Safety Report 6159120-6 (Version None)
Quarter: 2009Q2

REPORT INFORMATION
  Report Type: 
  Country: None (occurrence: None)
  Receive Date: 20090417
  Receipt Date: 20090406
  Transmission Date: 20091009
  Serious: Yes (Life-Threatening, Hospitalization)
  Sender: FDA-Public Use
  Company Number: FR-JNJFOC-20090306876

PATIENT
  Age: 43 Year
  Sex: Male
  Weight: 50 kg

DRUGS (2)
  1. REMICADE [Suspect]
     Indication: ANKYLOSING SPONDYLITIS
     Route: 042
  2. PARACETAMOL [Concomitant]
     Indication: ANKYLOSING SPONDYLITIS
     Dosage: 4 GRAMS DAILY AS NEEDED
     Route: 048

REACTIONS (2)
  - ARTHRODESIS [None]
  - PANCREATIC CARCINOMA [None]
